FAERS Safety Report 9412128 (Version 1)
Quarter: 2013Q3

REPORT INFORMATION
  Report Type: Spontaneous
  Country: US (occurrence: US)
  Receive Date: 20130722
  Receipt Date: 20130722
  Transmission Date: 20140515
  Serious: Yes (Hospitalization)
  Sender: FDA-Public Use
  Company Number: US-SANOFI-AVENTIS-2013SA072022

PATIENT
  Age: 13 Year
  Sex: Male
  Weight: 41.1 kg

DRUGS (7)
  1. LASIX [Suspect]
     Indication: PRODUCT USED FOR UNKNOWN INDICATION
     Route: 065
  2. VELCADE [Suspect]
     Indication: ACUTE MYELOID LEUKAEMIA
     Route: 040
     Dates: start: 20130522, end: 20130522
  3. VELCADE [Suspect]
     Indication: ACUTE MYELOID LEUKAEMIA
     Route: 040
     Dates: start: 20130525, end: 20130525
  4. VELCADE [Suspect]
     Indication: ACUTE MYELOID LEUKAEMIA
     Route: 040
     Dates: start: 20130529, end: 20130529
  5. CYTARABINE [Suspect]
     Indication: ACUTE MYELOID LEUKAEMIA
     Route: 042
     Dates: start: 20130527, end: 20130527
  6. ETOPOSIDE [Suspect]
     Indication: ACUTE MYELOID LEUKAEMIA
     Route: 042
     Dates: start: 20130526, end: 20130526
  7. ETOPOSIDE [Suspect]
     Indication: ACUTE MYELOID LEUKAEMIA
     Route: 042

REACTIONS (4)
  - Bacteraemia [Unknown]
  - Lung infection [Unknown]
  - Hyponatraemia [Recovered/Resolved]
  - Hypokalaemia [Recovered/Resolved]
